FAERS Safety Report 7310337-4 (Version None)
Quarter: 2011Q1

REPORT INFORMATION
  Report Type: 
  Country: None (occurrence: None)
  Receive Date: 20110224
  Receipt Date: 20110222
  Transmission Date: 20110831
  Serious: Yes (Life-Threatening, Hospitalization)
  Sender: FDA-Public Use
  Company Number: NL-BRISTOL-MYERS SQUIBB COMPANY-15299043

PATIENT
  Age: 70 Year
  Sex: Male

DRUGS (4)
  1. ABATACEPT [Suspect]
     Indication: RHEUMATOID ARTHRITIS
     Dosage: 1 DF:125 UNIT NOT SPECIFIED
     Route: 058
     Dates: start: 20090506
  2. CARDIOX [Concomitant]
     Dates: start: 20061017, end: 20100824
  3. VITAMIN B-12 [Concomitant]
     Dosage: INJ ALSO TAKEN ON 1999
     Dates: start: 20050503
  4. METHOTREXATE [Suspect]
     Dates: start: 20050503, end: 20100824

REACTIONS (3)
  - CHOLECYSTITIS [None]
  - TETANUS [None]
  - PNEUMONIA ASPIRATION [None]
